FAERS Safety Report 10348970 (Version 1)
Quarter: 2014Q3

REPORT INFORMATION
  Report Type: Spontaneous
  Country: US (occurrence: US)
  Receive Date: 20140729
  Receipt Date: 20140729
  Transmission Date: 20150326
  Serious: No
  Sender: FDA-Public Use
  Company Number: US-BAUSCH-BL-2013-004269

PATIENT
  Age: 37 Year
  Sex: Female

DRUGS (2)
  1. DAILY VITAMINS [Concomitant]
  2. OPCON-A [Suspect]
     Active Substance: NAPHAZOLINE HYDROCHLORIDE\PHENIRAMINE MALEATE
     Indication: DRY EYE
     Dosage: 2 DROPS; ONCE DAILY, RIGHT EYE
     Route: 047
     Dates: start: 20130711, end: 20130711

REACTIONS (5)
  - Vision blurred [Recovered/Resolved]
  - Wrong drug administered [Recovered/Resolved]
  - Off label use [Recovered/Resolved]
  - Photophobia [Recovered/Resolved]
  - Mydriasis [Recovered/Resolved]

NARRATIVE: CASE EVENT DATE: 20130711
